FAERS Safety Report 4942649-3 (Version None)
Quarter: 2006Q1

REPORT INFORMATION
  Report Type: 
  Country: None (occurrence: None)
  Receive Date: 20060308
  Receipt Date: 20060301
  Transmission Date: 20060701
  Serious: Yes (Life-Threatening)
  Sender: FDA-Public Use
  Company Number: 200510791BVD

PATIENT
  Age: 32 Year
  Sex: Male
  Weight: 100 kg

DRUGS (1)
  1. AVELOX [Suspect]
     Indication: BRONCHITIS
     Dosage: 400 MG, TOTAL DAILY, ORAL
     Route: 048
     Dates: start: 20050813

REACTIONS (9)
  - BLOOD CREATININE INCREASED [None]
  - BLOOD URIC ACID INCREASED [None]
  - C-REACTIVE PROTEIN INCREASED [None]
  - HAEMATURIA [None]
  - HEPATIC FUNCTION ABNORMAL [None]
  - POLYURIA [None]
  - RENAL FAILURE ACUTE [None]
  - STOMACH DISCOMFORT [None]
  - THROMBOCYTOPENIA [None]
